FAERS Safety Report 25767603 (Version 1)
Quarter: 2025Q3

REPORT INFORMATION
  Report Type: Other
  Country: EU (occurrence: EU)
  Receive Date: 20250905
  Receipt Date: 20250905
  Transmission Date: 20251020
  Serious: Yes (Death, Life-Threatening, Disabling, Congenital Anomaly, Other)
  Sender: LUPIN
  Company Number: None

PATIENT
  Sex: Female
  Weight: 0.475 kg

DRUGS (2)
  1. QUETIAPINE [Suspect]
     Active Substance: QUETIAPINE
     Indication: Depression
  2. CITALOPRAM [Suspect]
     Active Substance: CITALOPRAM
     Indication: Depression

REACTIONS (8)
  - Rectal atresia [Fatal]
  - Caudal regression syndrome [Fatal]
  - Sirenomelia [Fatal]
  - Anal atresia [Fatal]
  - Developmental hip dysplasia [Fatal]
  - Renal aplasia [Fatal]
  - Intestinal malrotation [Fatal]
  - Foetal exposure during pregnancy [Unknown]
